FAERS Safety Report 5890168-2 (Version None)
Quarter: 2008Q3

REPORT INFORMATION
  Report Type: 
  Country: None (occurrence: None)
  Receive Date: 20080919
  Receipt Date: 20080909
  Transmission Date: 20090109
  Serious: Yes (Life-Threatening)
  Sender: FDA-Public Use
  Company Number: JP-PFIZER INC-2008073378

PATIENT
  Sex: Female
  Weight: 53 kg

DRUGS (3)
  1. ZITHROMAX [Suspect]
     Indication: PERIODONTITIS
     Route: 048
     Dates: start: 20080825, end: 20080827
  2. CEFDINIR [Concomitant]
     Route: 048
     Dates: start: 20080822, end: 20080824
  3. VOLTAREN [Concomitant]
     Route: 048
     Dates: start: 20080822, end: 20080824

REACTIONS (1)
  - HYPERSENSITIVITY [None]
